FAERS Safety Report 15377586 (Version 2)
Quarter: 2018Q3

REPORT INFORMATION
  Report Type: Report from Study
  Country: US (occurrence: US)
  Receive Date: 20180913
  Receipt Date: 20180919
  Transmission Date: 20181010
  Serious: Yes (Hospitalization, Other)
  Sender: FDA-Public Use
  Company Number: US-KERYX BIOPHARMACEUTICALS INC.-2018US004335

PATIENT
  Age: 75 Year
  Sex: Male

DRUGS (1)
  1. AURYXIA [Suspect]
     Active Substance: TETRAFERRIC TRICITRATE DECAHYDRATE
     Indication: HYPERPHOSPHATAEMIA
     Dosage: 6 G, (6 TABLETS), QD
     Route: 048
     Dates: start: 20180629

REACTIONS (4)
  - Procedural hypotension [Unknown]
  - Rectal abscess [Unknown]
  - Arteriovenous fistula operation [Recovered/Resolved]
  - Delayed recovery from anaesthesia [Unknown]

NARRATIVE: CASE EVENT DATE: 20180727
